FAERS Safety Report 15881657 (Version 2)
Quarter: 2019Q1

REPORT INFORMATION
  Report Type: Spontaneous
  Country: BR (occurrence: BR)
  Receive Date: 20190128
  Receipt Date: 20190221
  Transmission Date: 20190417
  Serious: Yes (Death, Hospitalization, Other)
  Sender: FDA-Public Use
  Company Number: BR-PFIZER INC-2019033059

PATIENT
  Sex: Female

DRUGS (1)
  1. IBRANCE [Suspect]
     Active Substance: PALBOCICLIB
     Dosage: 75 MG, CYCLIC (ONCE PER DAY AT EACH 21 DAYS)

REACTIONS (4)
  - Bone marrow infiltration [Fatal]
  - Neoplasm progression [Unknown]
  - Pancytopenia [Unknown]
  - Condition aggravated [Fatal]
